FAERS Safety Report 6006028-2 (Version None)
Quarter: 2008Q4

REPORT INFORMATION
  Report Type: 
  Country: None (occurrence: None)
  Receive Date: 20081217
  Receipt Date: 20080330
  Transmission Date: 20090506
  Serious: No
  Sender: FDA-Public Use
  Company Number: US-AMGEN-KDL258504

PATIENT
  Sex: Female

DRUGS (2)
  1. ENBREL [Suspect]
     Indication: PSORIATIC ARTHROPATHY
     Route: 058
     Dates: start: 20040820
  2. ENBREL [Suspect]
     Indication: PSORIASIS

REACTIONS (17)
  - ASTHENIA [None]
  - CATARACT [None]
  - CHILLS [None]
  - DISTURBANCE IN ATTENTION [None]
  - DIZZINESS [None]
  - DRUG INEFFECTIVE [None]
  - FALL [None]
  - GOUT [None]
  - JOINT STIFFNESS [None]
  - MUSCULOSKELETAL STIFFNESS [None]
  - PSORIASIS [None]
  - PSORIATIC ARTHROPATHY [None]
  - RESPIRATORY TRACT CONGESTION [None]
  - RETINAL DISORDER [None]
  - RHINITIS [None]
  - RIB FRACTURE [None]
  - ROTATOR CUFF SYNDROME [None]
